FAERS Safety Report 4595476-3 (Version None)
Quarter: 2005Q1

REPORT INFORMATION
  Report Type: 
  Country: None (occurrence: None)
  Receive Date: 20050302
  Receipt Date: 20050218
  Transmission Date: 20050727
  Serious: Yes (Other)
  Sender: FDA-Public Use
  Company Number: US-JNJFOC-20050205576

PATIENT
  Sex: Female
  Weight: 113.4 kg

DRUGS (4)
  1. REMICADE [Suspect]
     Route: 042
  2. REMICADE [Suspect]
     Indication: RHEUMATOID ARTHRITIS
     Route: 042
  3. REMICADE [Suspect]
     Indication: PSORIASIS
     Dosage: 6-7 DOSES  5 VIALS
     Route: 042
  4. DEPO-PROVERA [Concomitant]

REACTIONS (5)
  - ABDOMINAL PAIN [None]
  - CHOKING [None]
  - HAEMATEMESIS [None]
  - RESPIRATORY ARREST [None]
  - RETCHING [None]
